FAERS Safety Report 5040715-8 (Version None)
Quarter: 2006Q3

REPORT INFORMATION
  Report Type: 
  Country: None (occurrence: None)
  Receive Date: 20060703
  Receipt Date: 20060623
  Transmission Date: 20061208
  Serious: Yes (Hospitalization, Other)
  Sender: FDA-Public Use
  Company Number: PHHO2006JP10399

PATIENT
  Age: 75 Year
  Sex: Male

DRUGS (2)
  1. DIOVAN [Suspect]
     Indication: HYPERTENSION
     Dosage: UNK, UNK
     Route: 048
     Dates: start: 20030203, end: 20040531
  2. MEVALOTIN [Concomitant]
     Dates: start: 20030203, end: 20040531

REACTIONS (2)
  - GASTRIC CANCER [None]
  - SURGERY [None]
